FAERS Safety Report 5321106-9 (Version None)
Quarter: 2007Q2

REPORT INFORMATION
  Report Type: 
  Country: None (occurrence: None)
  Receive Date: 20070510
  Receipt Date: 20070509
  Transmission Date: 20071010
  Serious: Yes (Death, Other)
  Sender: FDA-Public Use
  Company Number: DE-BRISTOL-MYERS SQUIBB COMPANY-13385059

PATIENT
  Age: 59 Year
  Sex: Female
  Weight: 49 kg

DRUGS (3)
  1. TAXOL [Suspect]
     Indication: LIP AND/OR ORAL CAVITY CANCER
     Route: 042
     Dates: start: 19950712, end: 19951017
  2. FLUOROURACIL [Suspect]
     Indication: LIP AND/OR ORAL CAVITY CANCER
     Route: 042
     Dates: start: 19951017, end: 19951021
  3. RADIOTHERAPY [Concomitant]
     Indication: LIP AND/OR ORAL CAVITY CANCER
     Dates: start: 19951017, end: 19951101

REACTIONS (3)
  - COMA [None]
  - SHOCK [None]
  - STOMATITIS [None]
